FAERS Safety Report 10685707 (Version 8)
Quarter: 2016Q1

REPORT INFORMATION
  Report Type: Spontaneous
  Country: US (occurrence: US)
  Receive Date: 20141231
  Receipt Date: 20160113
  Transmission Date: 20160525
  Serious: Yes (Other)
  Sender: FDA-Public Use
  Company Number: US-PFIZER INC-2014362018

PATIENT
  Age: 76 Year
  Sex: Female
  Weight: 95 kg

DRUGS (10)
  1. LYRICA [Suspect]
     Active Substance: PREGABALIN
     Dosage: 450 MG, 2X/DAY (ONE CAPSULE IN MORNING AND 2 CAPSULE AT NIGHT)
  2. LISINOPRIL. [Concomitant]
     Active Substance: LISINOPRIL
     Indication: HYPERTENSION
     Dosage: 5 MG, 1X/DAY (IN THE MORNING)
     Route: 048
  3. HYDROCODONE [Suspect]
     Active Substance: HYDROCODONE
     Indication: BACK PAIN
     Dosage: 1 DF, 4X/DAY
     Dates: start: 2015
  4. TRAZODONE [Concomitant]
     Active Substance: TRAZODONE HYDROCHLORIDE
     Indication: SLEEP DISORDER
     Dosage: 150 MG, 1X/DAY (AT NIGHT)
     Route: 048
  5. LYRICA [Suspect]
     Active Substance: PREGABALIN
     Indication: FIBROMYALGIA
     Dosage: 150 MG, 3X/DAY
  6. LYRICA [Suspect]
     Active Substance: PREGABALIN
     Dosage: 150 MG, 3X/DAY
  7. PERCOCET [Suspect]
     Active Substance: ACETAMINOPHEN\OXYCODONE HYDROCHLORIDE
     Indication: PAIN
     Dosage: 1 DF, (4 TIMES A DAY)AS NEEDED
     Dates: start: 2015
  8. LYRICA [Suspect]
     Active Substance: PREGABALIN
     Dosage: 450 MG, DAILY (ONE CAPSULE IN THE MORNING AND TWO CAPSULES BY MOUTH IN THE EVENING)
     Route: 048
  9. ATORVASTATIN [Concomitant]
     Active Substance: ATORVASTATIN
     Indication: BLOOD CHOLESTEROL INCREASED
     Dosage: 20 MG, 1X/DAY (AT NIGHT)
     Route: 048
  10. PERCOCET [Suspect]
     Active Substance: ACETAMINOPHEN\OXYCODONE HYDROCHLORIDE
     Dosage: 10 MG, UNK (EVERY FOUR TO SIX HOURS)
     Route: 048
     Dates: start: 201510

REACTIONS (19)
  - Osteoarthritis [Unknown]
  - Therapeutic response unexpected [Unknown]
  - Myalgia [Unknown]
  - Pain [Not Recovered/Not Resolved]
  - Neck pain [Unknown]
  - Malaise [Unknown]
  - Condition aggravated [Unknown]
  - Intervertebral disc protrusion [Unknown]
  - Back pain [Unknown]
  - Pain in extremity [Unknown]
  - Activities of daily living impaired [Unknown]
  - Intervertebral disc protrusion [Not Recovered/Not Resolved]
  - Dysstasia [Unknown]
  - Nerve compression [Unknown]
  - Fibromyalgia [Unknown]
  - Musculoskeletal pain [Unknown]
  - Gait disturbance [Unknown]
  - Weight increased [Unknown]
  - Drug ineffective [Unknown]

NARRATIVE: CASE EVENT DATE: 201501
